FAERS Safety Report 24542019 (Version 5)
Quarter: 2025Q2

REPORT INFORMATION
  Report Type: Report from Study
  Country: US (occurrence: US)
  Receive Date: 20241023
  Receipt Date: 20250620
  Transmission Date: 20250717
  Serious: Yes (Other)
  Sender: UCB
  Company Number: US-UCBSA-2024053761

PATIENT
  Sex: Male
  Weight: 83.3 kg

DRUGS (10)
  1. FINTEPLA [Suspect]
     Active Substance: FENFLURAMINE
     Indication: Lennox-Gastaut syndrome
     Dosage: 0.5 MILLILITER, 2X/DAY (BID)
     Dates: start: 20240401
  2. FINTEPLA [Suspect]
     Active Substance: FENFLURAMINE
     Route: 048
     Dates: start: 20240407
  3. FINTEPLA [Suspect]
     Active Substance: FENFLURAMINE
     Dosage: 1 MILLILITER, 2X/DAY (BID)
     Route: 048
     Dates: start: 20240501
  4. FINTEPLA [Suspect]
     Active Substance: FENFLURAMINE
     Dates: start: 20241110
  5. FINTEPLA [Suspect]
     Active Substance: FENFLURAMINE
     Dates: start: 202411
  6. FINTEPLA [Suspect]
     Active Substance: FENFLURAMINE
     Dates: start: 20250116
  7. FINTEPLA [Suspect]
     Active Substance: FENFLURAMINE
     Dosage: 3 MILLILITER, 2X/DAY (BID)
     Dates: start: 20250123
  8. CENOBAMATE [Suspect]
     Active Substance: CENOBAMATE
     Indication: Seizure
     Dosage: 300 MILLIGRAM, ONCE DAILY (QD)
     Dates: start: 20240401
  9. CENOBAMATE [Suspect]
     Active Substance: CENOBAMATE
     Dosage: 250 MILLIGRAM, ONCE DAILY (QD)
     Dates: start: 20241110, end: 20241117
  10. CENOBAMATE [Suspect]
     Active Substance: CENOBAMATE
     Dosage: 200 MILLIGRAM, ONCE DAILY (QD)
     Dates: start: 202411

REACTIONS (5)
  - Tricuspid valve incompetence [Not Recovered/Not Resolved]
  - Seizure [Recovering/Resolving]
  - Somnolence [Unknown]
  - Drug ineffective [Unknown]
  - Product use issue [Unknown]

NARRATIVE: CASE EVENT DATE: 20240101
